FAERS Safety Report 13405080 (Version 1)
Quarter: 2017Q2

REPORT INFORMATION
  Report Type: Spontaneous
  Country: US (occurrence: US)
  Receive Date: 20170405
  Receipt Date: 20170405
  Transmission Date: 20170830
  Serious: Yes (Life-Threatening, Disabling, Other)
  Sender: FDA-Public Use
  Company Number: None

PATIENT
  Sex: Male
  Weight: 124.74 kg

DRUGS (8)
  1. ATORVASTATIN [Concomitant]
     Active Substance: ATORVASTATIN
  2. ASPRIN EC [Concomitant]
  3. NITROSTAT [Concomitant]
     Active Substance: NITROGLYCERIN
  4. LOPRESSOR [Suspect]
     Active Substance: METOPROLOL TARTRATE
     Indication: HYPERTENSION
     Dosage: METOPROLOL 2 PILLS  LOPRESSOR 2 DAILY BY MOUTH
     Route: 048
     Dates: start: 20031031, end: 20170214
  5. HYDROCHLOROTHIAZIDE. [Concomitant]
     Active Substance: HYDROCHLOROTHIAZIDE
  6. NORVASC [Suspect]
     Active Substance: AMLODIPINE BESYLATE
     Dosage: AMLODIPINE 1 PILL  1 DAILY BY MOUTH
     Route: 048
  7. LEVOTHYROXINE. [Concomitant]
     Active Substance: LEVOTHYROXINE
  8. LACTULOSE. [Concomitant]
     Active Substance: LACTULOSE

REACTIONS (6)
  - Heart rate increased [None]
  - Vision blurred [None]
  - Weight increased [None]
  - Dyspnoea [None]
  - Arrhythmia [None]
  - Amnesia [None]
